FAERS Safety Report 8137158-7 (Version None)
Quarter: 2012Q1

REPORT INFORMATION
  Report Type: 
  Country: None (occurrence: None)
  Receive Date: 20120215
  Receipt Date: 20120208
  Transmission Date: 20120608
  Serious: Yes (Death, Hospitalization)
  Sender: FDA-Public Use
  Company Number: GB-ACCORD-012321

PATIENT
  Age: 36 Year
  Sex: Male

DRUGS (8)
  1. VALPROATE SODIUM [Concomitant]
  2. OMEPRAZOLE [Concomitant]
  3. CLONAZEPAM [Concomitant]
  4. SIMVASTATIN [Suspect]
     Route: 048
  5. FOLIC ACID [Concomitant]
  6. ARIPIPRAZOLE [Suspect]
     Indication: SCHIZOPHRENIA
     Route: 048
  7. CLOZAPINE [Suspect]
     Indication: SCHIZOPHRENIA
     Route: 048
     Dates: end: 20120109
  8. WARFARIN SODIUM [Concomitant]

REACTIONS (4)
  - CIRCULATORY COLLAPSE [None]
  - HEPATIC FUNCTION ABNORMAL [None]
  - NEUROLEPTIC MALIGNANT SYNDROME [None]
  - RENAL IMPAIRMENT [None]
